FAERS Safety Report 15105683 (Version 1)
Quarter: 2018Q3

REPORT INFORMATION
  Report Type: Spontaneous
  Country: DZ (occurrence: DZ)
  Receive Date: 20180704
  Receipt Date: 20180704
  Transmission Date: 20181010
  Serious: Yes (Other)
  Sender: FDA-Public Use
  Company Number: DZ-ROCHE-2149562

PATIENT
  Age: 50 Year
  Sex: Female

DRUGS (5)
  1. ANASTROZOLE. [Suspect]
     Active Substance: ANASTROZOLE
     Indication: BREAST NEOPLASM
     Dosage: 1 MG
     Route: 065
  2. LOW MOLECULAR WEIGHT HEPARIN [Concomitant]
     Active Substance: UNSPECIFIED INGREDIENT
     Indication: BREAST NEOPLASM
  3. TAMOXIFENE [Concomitant]
     Active Substance: TAMOXIFEN
     Indication: BREAST NEOPLASM
     Dosage: 20 MG ONCE PER DAY EVERY DAY
     Route: 048
  4. TRASTUZUMAB. [Suspect]
     Active Substance: TRASTUZUMAB
     Indication: BREAST NEOPLASM
     Dosage: 8 MG/KG ONCE PER 21 DAYS
     Route: 042
  5. TRASTUZUMAB. [Suspect]
     Active Substance: TRASTUZUMAB
     Dosage: 6 MG/KG ONCE PER 21 DAYS
     Route: 042

REACTIONS (2)
  - Ejection fraction decreased [Unknown]
  - Thrombophlebitis [Unknown]
